FAERS Safety Report 20031444 (Version 2)
Quarter: 2021Q4

REPORT INFORMATION
  Report Type: Spontaneous
  Country: US (occurrence: US)
  Receive Date: 20211103
  Receipt Date: 20211116
  Transmission Date: 20220303
  Serious: Yes (Other)
  Sender: FDA-Public Use
  Company Number: US-GILEAD-2021-0554758

PATIENT
  Age: 56 Year
  Sex: Male
  Weight: 77.098 kg

DRUGS (1)
  1. YESCARTA [Suspect]
     Active Substance: AXICABTAGENE CILOLEUCEL
     Indication: Follicular lymphoma
     Dosage: UNK
     Route: 065
     Dates: start: 20210720, end: 20210720

REACTIONS (1)
  - Follicular lymphoma [Not Recovered/Not Resolved]

NARRATIVE: CASE EVENT DATE: 20211020
